FAERS Safety Report 16706671 (Version 1)
Quarter: 2019Q3

REPORT INFORMATION
  Report Type: Spontaneous
  Country: US (occurrence: US)
  Receive Date: 20190815
  Receipt Date: 20190815
  Transmission Date: 20191004
  Serious: No
  Sender: FDA-Public Use
  Company Number: US-PACIRA-201800202

PATIENT

DRUGS (2)
  1. BUPIVACAINE. [Suspect]
     Active Substance: BUPIVACAINE
     Indication: LOCAL ANAESTHESIA
     Dosage: 10 ML SINGLE DOSE
  2. EXPAREL [Suspect]
     Active Substance: BUPIVACAINE
     Indication: LOCAL ANAESTHESIA
     Dosage: 10 ML SINGLE DOSE

REACTIONS (8)
  - Dyspnoea [Unknown]
  - Dizziness [Unknown]
  - Nausea [Unknown]
  - Pruritus [Unknown]
  - Asthenia [Unknown]
  - Insomnia [Unknown]
  - Constipation [Unknown]
  - Somnolence [Unknown]
